FAERS Safety Report 9558304 (Version 2)
Quarter: 2013Q4

REPORT INFORMATION
  Report Type: Report from Study
  Country: CA (occurrence: CA)
  Receive Date: 20130926
  Receipt Date: 20131105
  Transmission Date: 20140711
  Serious: Yes (Other)
  Sender: FDA-Public Use
  Company Number: CA-US-EMD SERONO, INC.-7238561

PATIENT
  Age: 60 Year
  Sex: Female

DRUGS (1)
  1. REBIF [Suspect]
     Indication: MULTIPLE SCLEROSIS
     Route: 058
     Dates: start: 20120610

REACTIONS (10)
  - Akinesia [Unknown]
  - Pain in extremity [Unknown]
  - Gait disturbance [Unknown]
  - Hypotonia [Unknown]
  - Multiple sclerosis relapse [Unknown]
  - Paraesthesia [Unknown]
  - Hypoaesthesia [Unknown]
  - Sensory disturbance [Unknown]
  - Headache [Unknown]
  - Pain [Unknown]
